FAERS Safety Report 7278824 (Version 3)
Quarter: 2012Q4

REPORT INFORMATION
  Report Type: 
  Country: CA (occurrence: CA)
  Receive Date: 20100215
  Receipt Date: 20121107
  Transmission Date: 20130627
  Serious: Yes (Other)
  Sender: FDA-Public Use
  Company Number: PHHY2010CA06447

PATIENT
  Sex: Female

DRUGS (2)
  1. SANDOSTATIN LAR [Suspect]
     Indication: ACROMEGALY
     Dosage: 30 mg, TIW
     Route: 030
     Dates: start: 20080606
  2. SANDOSTATIN LAR [Suspect]
     Dosage: 30 mg, Every 4 weeks
     Route: 030

REACTIONS (7)
  - Pituitary tumour [Unknown]
  - Sinus disorder [Unknown]
  - Injection site swelling [Unknown]
  - Myalgia [Unknown]
  - Nasopharyngitis [Unknown]
  - Headache [Unknown]
  - Injection site pain [Unknown]
